FAERS Safety Report 21725388 (Version 1)
Quarter: 2022Q4

REPORT INFORMATION
  Report Type: Spontaneous
  Country: US (occurrence: US)
  Receive Date: 20221214
  Receipt Date: 20221214
  Transmission Date: 20230113
  Serious: Yes (Other)
  Sender: FDA-Public Use
  Company Number: US-JNJFOC-20221213283

PATIENT

DRUGS (2)
  1. SALICYLIC ACID [Suspect]
     Active Substance: SALICYLIC ACID
     Indication: Unintentional use for unapproved indication
     Route: 049
  2. SALICYLIC ACID [Suspect]
     Active Substance: SALICYLIC ACID
     Indication: Incorrect route of product administration

REACTIONS (5)
  - Haematemesis [Unknown]
  - Unintentional use for unapproved indication [Unknown]
  - Incorrect route of product administration [Unknown]
  - Oral discomfort [Unknown]
  - Hypoaesthesia oral [Unknown]
